FAERS Safety Report 5078162-5 (Version None)
Quarter: 2006Q3

REPORT INFORMATION
  Report Type: 
  Country: None (occurrence: None)
  Receive Date: 20060725
  Receipt Date: 20060328
  Transmission Date: 20061208
  Serious: No
  Sender: FDA-Public Use
  Company Number: 2006-BP-03526BP

PATIENT
  Sex: Female

DRUGS (1)
  1. APTIVUS/RITONAVIR CAPSULES [Suspect]
     Dosage: PO
     Route: 048
     Dates: end: 20051101

REACTIONS (3)
  - JAUNDICE [None]
  - LIVER FUNCTION TEST ABNORMAL [None]
  - PANCREATITIS [None]
